FAERS Safety Report 7445120-2 (Version None)
Quarter: 2011Q2

REPORT INFORMATION
  Report Type: 
  Country: None (occurrence: None)
  Receive Date: 20110429
  Receipt Date: 20110419
  Transmission Date: 20111010
  Serious: Yes (Hospitalization)
  Sender: FDA-Public Use
  Company Number: US-AMGEN-USASP2011020609

PATIENT
  Age: 48 Year
  Sex: Female

DRUGS (1)
  1. ENBREL [Suspect]
     Indication: RHEUMATOID ARTHRITIS
     Dosage: 50 MG, QWK

REACTIONS (6)
  - DYSMENORRHOEA [None]
  - NAUSEA [None]
  - INJECTION SITE PAIN [None]
  - FALL [None]
  - VOMITING [None]
  - DIZZINESS [None]
